FAERS Safety Report 6983734-4 (Version None)
Quarter: 2010Q3

REPORT INFORMATION
  Report Type: 
  Country: None (occurrence: None)
  Receive Date: 20100914
  Receipt Date: 20090205
  Transmission Date: 20110219
  Serious: No
  Sender: FDA-Public Use
  Company Number: US-WYE-H08114109

PATIENT
  Age: 61 Year
  Sex: Female
  Weight: 86.26 kg

DRUGS (3)
  1. ADVIL LIQUI-GELS [Suspect]
     Indication: ARTHRITIS
     Route: 048
     Dates: start: 20090203
  2. ADVIL LIQUI-GELS [Suspect]
     Indication: PAIN
  3. XANAX [Concomitant]

REACTIONS (3)
  - BLADDER DISCOMFORT [None]
  - CYSTITIS [None]
  - POLLAKIURIA [None]
